FAERS Safety Report 5610450-3 (Version None)
Quarter: 2008Q1

REPORT INFORMATION
  Report Type: 
  Country: None (occurrence: None)
  Receive Date: 20080128
  Receipt Date: 20080117
  Transmission Date: 20080703
  Serious: Yes (Other)
  Sender: FDA-Public Use
  Company Number: 230637J08USA

PATIENT
  Age: 34 Year
  Sex: Female
  Weight: 70.3075 kg

DRUGS (2)
  1. REBIF [Suspect]
     Indication: MULTIPLE SCLEROSIS
     Dosage: 44 MCG, 3 IN 1 WEEKS, SUBCUTANEOUS
     Route: 058
     Dates: start: 20070713
  2. HYDROCHLOROTHIAZIDE [Concomitant]

REACTIONS (2)
  - MENSTRUATION IRREGULAR [None]
  - UTERINE LEIOMYOMA [None]
